FAERS Safety Report 6936012-3 (Version None)
Quarter: 2010Q3

REPORT INFORMATION
  Report Type: 
  Country: None (occurrence: None)
  Receive Date: 20100823
  Receipt Date: 20100812
  Transmission Date: 20110219
  Serious: Yes (Other)
  Sender: FDA-Public Use
  Company Number: CH-ASTRAZENECA-2010SE38022

PATIENT
  Age: 65 Year
  Sex: Male

DRUGS (10)
  1. TENORMIN [Suspect]
     Indication: ESSENTIAL HYPERTENSION
     Route: 048
  2. ACTEMRA [Suspect]
     Indication: PSORIATIC ARTHROPATHY
     Route: 042
     Dates: start: 20090701
  3. APROVEL [Concomitant]
     Indication: ESSENTIAL HYPERTENSION
     Route: 048
  4. COVERSUM [Concomitant]
     Indication: ESSENTIAL HYPERTENSION
     Route: 048
  5. ASPIRINE [Concomitant]
     Indication: PROPHYLACTIC CHEMOTHERAPY
     Route: 048
  6. GLUCOPHAGE [Concomitant]
     Indication: TYPE 2 DIABETES MELLITUS
     Route: 048
  7. EZETIMIBE/SIMVASTATIN [Concomitant]
     Indication: HYPERLIPIDAEMIA
     Dosage: DAILY
     Route: 048
  8. XATRAL UNO [Concomitant]
     Indication: BENIGN PROSTATIC HYPERPLASIA
     Route: 048
  9. SIMVASTATIN [Concomitant]
  10. EZETIMIBE [Concomitant]

REACTIONS (5)
  - BRADYCARDIA [None]
  - DIZZINESS [None]
  - HYPERHIDROSIS [None]
  - HYPERTENSION [None]
  - TYPE I HYPERSENSITIVITY [None]
